FAERS Safety Report 7799529-8 (Version None)
Quarter: 2011Q4

REPORT INFORMATION
  Report Type: 
  Country: None (occurrence: None)
  Receive Date: 20111006
  Receipt Date: 20111006
  Transmission Date: 20120403
  Serious: Yes (Hospitalization)
  Sender: FDA-Public Use
  Company Number: None

PATIENT
  Age: 77 Year
  Sex: Male

DRUGS (1)
  1. ZYTIGA [Suspect]
     Indication: PROSTATE CANCER
     Dosage: 4 TABLETS
     Route: 048
     Dates: start: 20110728, end: 20110920

REACTIONS (4)
  - OEDEMA [None]
  - CARDIAC FAILURE [None]
  - WEIGHT INCREASED [None]
  - RENAL FAILURE [None]
